FAERS Safety Report 9034197 (Version 1)
Quarter: 2013Q1

REPORT INFORMATION
  Report Type: Spontaneous
  Country: CA (occurrence: CA)
  Receive Date: 20130128
  Receipt Date: 20130128
  Transmission Date: 20140127
  Serious: Yes (Hospitalization)
  Sender: FDA-Public Use
  Company Number: CA-AMGEN-CANSP2011069849

PATIENT
  Age: 90 Year
  Sex: Female
  Weight: 60.77 kg

DRUGS (2)
  1. PROLIA [Suspect]
     Indication: OSTEOPOROSIS
     Dosage: 60 MG, Q6MO
     Route: 058
     Dates: start: 20110413
  2. ACLASTA [Concomitant]

REACTIONS (3)
  - Monoplegia [Recovered/Resolved]
  - Spinal column stenosis [Not Recovered/Not Resolved]
  - Bone density decreased [Not Recovered/Not Resolved]
